FAERS Safety Report 22589788 (Version 1)
Quarter: 2023Q2

REPORT INFORMATION
  Report Type: Spontaneous
  Country: US (occurrence: US)
  Receive Date: 20230612
  Receipt Date: 20230612
  Transmission Date: 20230721
  Serious: Yes (Death)
  Sender: FDA-Public Use
  Company Number: US-Vifor (International) Inc.-VIT-2023-04188

PATIENT
  Age: 42 Year
  Sex: Female
  Weight: 54.2 kg

DRUGS (2)
  1. MIRCERA [Suspect]
     Active Substance: METHOXY POLYETHYLENE GLYCOL-EPOETIN BETA
     Indication: Anaemia
     Route: 058
     Dates: start: 20230603, end: 20230603
  2. VENOFER [Suspect]
     Active Substance: IRON SUCROSE
     Indication: Product used for unknown indication
     Route: 042
     Dates: start: 20230603

REACTIONS (4)
  - Cerebrovascular accident [Fatal]
  - Unresponsive to stimuli [Fatal]
  - Seizure [Fatal]
  - Blood pressure increased [Fatal]

NARRATIVE: CASE EVENT DATE: 20230603
